FAERS Safety Report 6677388-4 (Version None)
Quarter: 2010Q2

REPORT INFORMATION
  Report Type: 
  Country: None (occurrence: None)
  Receive Date: 20100412
  Receipt Date: 20100104
  Transmission Date: 20101027
  Serious: No
  Sender: FDA-Public Use
  Company Number: US-ALEXION-A201000002

PATIENT
  Sex: Female

DRUGS (6)
  1. SOLIRIS [Suspect]
     Indication: PAROXYSMAL NOCTURNAL HAEMOGLOBINURIA
     Dosage: 600 MG, QW
     Route: 042
     Dates: start: 20090423, end: 20090501
  2. SOLIRIS [Suspect]
     Dosage: 900 MG, Q2W
     Route: 042
     Dates: start: 20090520
  3. METHIMAZOLE [Concomitant]
     Indication: HYPERTHYROIDISM
     Dosage: UNK
     Dates: start: 20091215
  4. FONDAPARINUX SODIUM [Concomitant]
     Indication: THROMBOSIS PROPHYLAXIS
     Dosage: UNK
     Route: 048
  5. ATENOLOL [Concomitant]
     Dosage: UNK
     Route: 048
  6. SYNTHROID [Concomitant]
     Indication: THYROID HORMONE REPLACEMENT THERAPY
     Dosage: UNK
     Route: 048
     Dates: start: 20100101

REACTIONS (4)
  - PRURITUS [None]
  - RASH [None]
  - STRESS [None]
  - URTICARIA [None]
